FAERS Safety Report 6191324-9 (Version None)
Quarter: 2009Q2

REPORT INFORMATION
  Report Type: 
  Country: None (occurrence: None)
  Receive Date: 20090428
  Receipt Date: 20090428
  Transmission Date: 20091009
  Serious: Yes (Other)
  Sender: FDA-Public Use
  Company Number: None

PATIENT
  Sex: Female
  Weight: 45.3597 kg

DRUGS (1)
  1. LEVAQUIN [Suspect]
     Indication: LUNG INFECTION
     Dosage: 500 MG 1 PER DAY MOUTH
     Route: 048
     Dates: start: 20090403, end: 20090404

REACTIONS (7)
  - DYSKINESIA [None]
  - HALLUCINATION, VISUAL [None]
  - HYPOPHAGIA [None]
  - NERVOUSNESS [None]
  - STARING [None]
  - TREMOR [None]
  - UNEVALUABLE EVENT [None]
